FAERS Safety Report 20195437 (Version 2)
Quarter: 2022Q1

REPORT INFORMATION
  Report Type: Spontaneous
  Country: IT (occurrence: IT)
  Receive Date: 20211216
  Receipt Date: 20220118
  Transmission Date: 20220424
  Serious: Yes (Hospitalization, Other)
  Sender: FDA-Public Use
  Company Number: IT-BAYER-2021A267258

PATIENT
  Age: 50 Year
  Sex: Female

DRUGS (2)
  1. STIVARGA [Suspect]
     Active Substance: REGORAFENIB
     Indication: Glioblastoma
     Dosage: UNK
     Dates: start: 20211020
  2. ENOXAPARIN SODIUM [Concomitant]
     Active Substance: ENOXAPARIN SODIUM
     Dosage: 6000 UNK, BID

REACTIONS (5)
  - Pulmonary embolism [None]
  - Hepatotoxicity [None]
  - Off label use [None]
  - Asthenia [None]
  - Dyspnoea [None]

NARRATIVE: CASE EVENT DATE: 20211001
